FAERS Safety Report 9419496 (Version 1)
Quarter: 2013Q3

REPORT INFORMATION
  Report Type: Spontaneous
  Country: US (occurrence: None)
  Receive Date: 20130723
  Receipt Date: 20130723
  Transmission Date: 20140515
  Serious: Yes (Death)
  Sender: FDA-Public Use
  Company Number: SYM-2013-06430

PATIENT
  Age: 80 Year
  Sex: Female

DRUGS (5)
  1. XENAZINE [Suspect]
     Indication: DYSTONIA
     Route: 048
     Dates: start: 20091012
  2. ATROPIN (ATROPINE) (ATROPINE) [Concomitant]
  3. LORAZEPAM (LORAZEPAM) (LORAZEPAM) [Concomitant]
  4. MIROLAX (OTHER THERAPEUTIC PRODUCTS) (NULL) [Concomitant]
  5. OXYCODONE (OXYCODONE) (OXYCODONE) [Concomitant]

REACTIONS (1)
  - Death [None]
